FAERS Safety Report 23445771 (Version 1)
Quarter: 2024Q1

REPORT INFORMATION
  Report Type: Spontaneous
  Country: PL (occurrence: PL)
  Receive Date: 20240126
  Receipt Date: 20240126
  Transmission Date: 20240409
  Serious: Yes (Hospitalization, Other)
  Sender: FDA-Public Use
  Company Number: PL-RECORDATI-2024000021

PATIENT

DRUGS (1)
  1. METOPROLOL SUCCINATE [Suspect]
     Active Substance: METOPROLOL SUCCINATE
     Indication: Hypertrophic cardiomyopathy
     Dosage: 2 MG/KG
     Route: 048

REACTIONS (4)
  - Atrial fibrillation [Unknown]
  - Supraventricular tachycardia [Unknown]
  - Hypotension [Unknown]
  - Disease progression [Unknown]
